FAERS Safety Report 4752873-0 (Version None)
Quarter: 2005Q3

REPORT INFORMATION
  Report Type: 
  Country: None (occurrence: None)
  Receive Date: 20050823
  Receipt Date: 20050816
  Transmission Date: 20060218
  Serious: Yes (Other)
  Sender: FDA-Public Use
  Company Number: 216980

PATIENT
  Sex: 0

DRUGS (1)
  1. XOLAIR (OMALIZUMAB) PWDR + SOLVENT INJECTON SOLN 150MG [Suspect]
     Indication: DRUG USE FOR UNKNOWN INDICATION

REACTIONS (1)
  - JUVENILE ARTHRITIS [None]
